FAERS Safety Report 9473355 (Version 1)
Quarter: 2013Q3

REPORT INFORMATION
  Report Type: Spontaneous
  Country: US (occurrence: US)
  Receive Date: 20130823
  Receipt Date: 20130823
  Transmission Date: 20140515
  Serious: Yes (Hospitalization)
  Sender: FDA-Public Use
  Company Number: US-BRISTOL-MYERS SQUIBB COMPANY-18915785

PATIENT
  Age: 63 Year
  Sex: Female

DRUGS (1)
  1. SPRYCEL (CML) TABS 100 MG [Suspect]
     Indication: CHRONIC MYELOID LEUKAEMIA
     Dosage: SPRYCEL TABS
     Route: 048
     Dates: start: 20121220

REACTIONS (6)
  - Pericardial effusion [Unknown]
  - Fluid retention [Unknown]
  - Fatigue [Unknown]
  - Dysphonia [Unknown]
  - Dysgeusia [Unknown]
  - Skin papilloma [Unknown]
